FAERS Safety Report 6731317-3 (Version None)
Quarter: 2010Q2

REPORT INFORMATION
  Report Type: 
  Country: None (occurrence: None)
  Receive Date: 20100517
  Receipt Date: 20100517
  Transmission Date: 20101027
  Serious: No
  Sender: FDA-Public Use
  Company Number: None

PATIENT
  Age: 25 Year
  Sex: Male
  Weight: 81.6475 kg

DRUGS (1)
  1. METOCLOPRAMIDE [Suspect]
     Dosage: 10 MG 2X DAILY, AS NEEDE PO
     Route: 048
     Dates: start: 20090301, end: 20100309

REACTIONS (8)
  - DEPRESSION [None]
  - INSOMNIA [None]
  - MUSCLE SPASMS [None]
  - MUSCLE TWITCHING [None]
  - QUALITY OF LIFE DECREASED [None]
  - TARDIVE DYSKINESIA [None]
  - TONGUE DISORDER [None]
  - TREMOR [None]
